FAERS Safety Report 14328115 (Version 1)
Quarter: 2017Q4

REPORT INFORMATION
  Report Type: Spontaneous
  Country: US (occurrence: US)
  Receive Date: 20171226
  Receipt Date: 20171226
  Transmission Date: 20180321
  Serious: Yes (Hospitalization)
  Sender: FDA-Public Use
  Company Number: None

PATIENT
  Age: 77 Year
  Sex: Female

DRUGS (13)
  1. VITAMIN B COMPLEX [Concomitant]
     Active Substance: CYANOCOBALAMIN\DEXPANTHENOL\NIACINAMIDE\PYRIDOXINE HYDROCHLORIDE\RIBOFLAVIN 5^-PHOSPHATE SODIUM\THIAMINE HYDROCHLORIDE\VITAMIN B COMPLEX
  2. WARFARIN [Concomitant]
     Active Substance: WARFARIN
  3. NORCO [Concomitant]
     Active Substance: ACETAMINOPHEN\HYDROCODONE BITARTRATE
  4. MULTIVITAMIN [Concomitant]
     Active Substance: VITAMINS
  5. NITROFURANTOIN. [Concomitant]
     Active Substance: NITROFURANTOIN
  6. LONSURF [Suspect]
     Active Substance: TIPIRACIL HYDROCHLORIDE\TRIFLURIDINE
     Indication: COLON CANCER
     Dosage: 40MG TWICE DAILY ORAL, DAYS 1-6,8-12 / 28DAYS
     Route: 048
     Dates: start: 20171017
  7. VITAMIN D [Concomitant]
     Active Substance: CHOLECALCIFEROL
  8. FERROUS SULFAT [Concomitant]
  9. SYNTHROID [Concomitant]
     Active Substance: LEVOTHYROXINE SODIUM
  10. LEXAPRO [Concomitant]
     Active Substance: ESCITALOPRAM OXALATE
  11. VITAMIN C [Concomitant]
     Active Substance: ASCORBIC ACID
  12. METRONIDAZOLE. [Concomitant]
     Active Substance: METRONIDAZOLE
  13. KLONOPIN [Concomitant]
     Active Substance: CLONAZEPAM

REACTIONS (4)
  - Clostridium difficile infection [None]
  - Device occlusion [None]
  - Renal mass [None]
  - Urinary tract infection [None]
